FAERS Safety Report 10233737 (Version 1)
Quarter: 2014Q2

REPORT INFORMATION
  Report Type: Spontaneous
  Country: US (occurrence: US)
  Receive Date: 20140612
  Receipt Date: 20140612
  Transmission Date: 20141212
  Serious: No
  Sender: FDA-Public Use
  Company Number: US-ASTRAZENECA-2014SE36785

PATIENT
  Sex: Male

DRUGS (1)
  1. SYMBICORT [Suspect]
     Dosage: 16/4.5 MCG Q12H
     Route: 055
     Dates: start: 201401

REACTIONS (2)
  - Asthma [Unknown]
  - Drug effect incomplete [Unknown]
